FAERS Safety Report 9227438 (Version 1)
Quarter: 2013Q2

REPORT INFORMATION
  Report Type: Spontaneous
  Country: US (occurrence: None)
  Receive Date: 20130411
  Receipt Date: 20130411
  Transmission Date: 20140414
  Serious: Yes (Hospitalization)
  Sender: FDA-Public Use
  Company Number: None

PATIENT
  Age: 70 Year
  Sex: Male
  Weight: 118.8 kg

DRUGS (9)
  1. ETODOLAC [Suspect]
     Indication: ARTHRITIS
     Dosage: CHRONIC
     Route: 048
  2. ASPIRIN [Suspect]
     Indication: ARTHRITIS
     Dosage: CHRONIC
     Route: 048
  3. PRAVASTATIN [Concomitant]
  4. LISINOPRIL/HCTZ [Concomitant]
  5. SITAGLIFTIN [Concomitant]
  6. FISH OIL [Concomitant]
  7. IMIPRAMINE [Concomitant]
  8. CITALOPRAM [Concomitant]
  9. METFORMIN [Concomitant]

REACTIONS (4)
  - Presyncope [None]
  - Haemorrhagic anaemia [None]
  - Upper gastrointestinal haemorrhage [None]
  - Portal hypertensive gastropathy [None]
